FAERS Safety Report 6242790-1 (Version None)
Quarter: 2009Q2

REPORT INFORMATION
  Report Type: 
  Country: None (occurrence: None)
  Receive Date: 20090624
  Receipt Date: 20090623
  Transmission Date: 20091009
  Serious: Yes (Death)
  Sender: FDA-Public Use
  Company Number: PH-B.I. PHARMACEUTICALS,INC./RIDGEFIELD-2009-SG-00304SG

PATIENT

DRUGS (3)
  1. MICARDIS [Suspect]
     Indication: HYPERTENSION
  2. PLAVIX [Concomitant]
  3. IBERET [Concomitant]

REACTIONS (1)
  - TREMOR [None]
